FAERS Safety Report 5135782-7 (Version None)
Quarter: 2006Q4

REPORT INFORMATION
  Report Type: 
  Country: None (occurrence: None)
  Receive Date: 20061020
  Receipt Date: 20061006
  Transmission Date: 20070319
  Serious: Yes (Death, Other)
  Sender: FDA-Public Use
  Company Number: 2006BI014469

PATIENT
  Age: 46 Day
  Sex: Female
  Weight: 0.567 kg

DRUGS (1)
  1. AVONEX [Suspect]
     Indication: MULTIPLE SCLEROSIS
     Dosage: 30 UG; QW; IM
     Route: 030
     Dates: start: 20021015, end: 20051204

REACTIONS (4)
  - DRUG EXPOSURE DURING PREGNANCY [None]
  - GASTRIC INFECTION [None]
  - PREMATURE BABY [None]
  - SMALL FOR DATES BABY [None]
